FAERS Safety Report 7898679-5 (Version None)
Quarter: 2011Q4

REPORT INFORMATION
  Report Type: 
  Country: None (occurrence: None)
  Receive Date: 20111107
  Receipt Date: 20111102
  Transmission Date: 20120403
  Serious: Yes (Hospitalization, Other)
  Sender: FDA-Public Use
  Company Number: GB-PFIZER INC-2011254774

PATIENT
  Age: 18 Year

DRUGS (4)
  1. VASOPRESSIN (BIOMARKER) [Suspect]
     Dosage: UNK
  2. MORPHINE SULFATE [Suspect]
     Indication: PAIN
     Dosage: UNK
  3. HYDROCORTISONE [Suspect]
     Dosage: UNK
  4. PROPOFOL [Suspect]
     Dosage: UNK

REACTIONS (2)
  - RHABDOMYOLYSIS [None]
  - RENAL FAILURE ACUTE [None]
